FAERS Safety Report 5839312-3 (Version None)
Quarter: 2008Q3

REPORT INFORMATION
  Report Type: 
  Country: None (occurrence: None)
  Receive Date: 20080808
  Receipt Date: 20080729
  Transmission Date: 20090109
  Serious: Yes (Hospitalization, Other)
  Sender: FDA-Public Use
  Company Number: US-PFIZER INC-2008064318

PATIENT
  Age: 10 Year
  Sex: Male

DRUGS (12)
  1. PREDNISONE [Suspect]
     Dosage: DAILY DOSE:40MG
     Route: 048
  2. SERTRALINE [Suspect]
     Indication: MAJOR DEPRESSION
     Dosage: DAILY DOSE:25MG
     Route: 048
  3. SERTRALINE [Suspect]
     Indication: ANXIETY
  4. METHYLPREDNISOLONE [Suspect]
     Indication: ASTHMA
     Dosage: DAILY DOSE:80MG
     Route: 042
  5. METHYLPREDNISOLONE [Suspect]
     Dosage: DAILY DOSE:120MG
  6. THEOPHYLLINE [Suspect]
     Indication: ASTHMA
  7. IPRATROPIUM BROMIDE [Suspect]
  8. BECLOMETHASONE DIPROPIONATE [Suspect]
     Indication: ASTHMA
  9. DEXAMETHASONE [Suspect]
     Indication: ASTHMA
  10. SALMETEROL [Concomitant]
  11. ALBUTEROL [Concomitant]
  12. CROMOLYN SODIUM [Concomitant]

REACTIONS (13)
  - AGITATION [None]
  - ANXIETY [None]
  - ASTHENIA [None]
  - CUSHINGOID [None]
  - DEMENTIA [None]
  - DEPRESSION [None]
  - HALLUCINATION, AUDITORY [None]
  - HALLUCINATION, VISUAL [None]
  - INSOMNIA [None]
  - MAJOR DEPRESSION [None]
  - MYOPATHY [None]
  - NEUROTOXICITY [None]
  - NIGHTMARE [None]
